FAERS Safety Report 11605162 (Version 2)
Quarter: 2015Q4

REPORT INFORMATION
  Report Type: Spontaneous
  Country: US (occurrence: US)
  Receive Date: 20151007
  Receipt Date: 20151012
  Transmission Date: 20160304
  Serious: No
  Sender: FDA-Public Use
  Company Number: US-PFIZER INC-2015331269

PATIENT
  Age: 71 Year
  Sex: Male

DRUGS (2)
  1. NEURONTIN [Suspect]
     Active Substance: GABAPENTIN
     Dosage: 3600 MG, DAILY (TWO TABLETS 3 TIMES A DAY )
  2. NEURONTIN [Suspect]
     Active Substance: GABAPENTIN
     Dosage: 1200 MG, 2X/DAY (600 MG TWO TABLETS TWICE A DAY)

REACTIONS (1)
  - Diplopia [Unknown]
